FAERS Safety Report 6585142-7 (Version None)
Quarter: 2010Q1

REPORT INFORMATION
  Report Type: 
  Country: None (occurrence: None)
  Receive Date: 20100204
  Receipt Date: 20100118
  Transmission Date: 20100710
  Serious: Yes (Death)
  Sender: FDA-Public Use
  Company Number: IMP-04848_2010

PATIENT
  Age: 26 Year
  Sex: Female

DRUGS (2)
  1. ALPRAZOLAM [Suspect]
     Indication: DRUG USE FOR UNKNOWN INDICATION
     Dosage: 64 DF 1X, DF ORAL
     Route: 048
  2. ANTIHISTAMINES 25 MG [Suspect]
     Indication: DRUG USE FOR UNKNOWN INDICATION
     Dosage: 2 ML 1X, DF PARENTERAL
     Route: 051

REACTIONS (14)
  - APNOEA [None]
  - BLOOD GLUCOSE INCREASED [None]
  - BLOOD POTASSIUM INCREASED [None]
  - BLOOD SODIUM INCREASED [None]
  - CARDIO-RESPIRATORY ARREST [None]
  - COMPLETED SUICIDE [None]
  - HAEMOGLOBIN DECREASED [None]
  - INTENTIONAL OVERDOSE [None]
  - PLATELET COUNT DECREASED [None]
  - POISONING [None]
  - PULMONARY GRANULOMA [None]
  - PULSE ABSENT [None]
  - THERAPEUTIC AGENT TOXICITY [None]
  - WHITE BLOOD CELL COUNT INCREASED [None]
